FAERS Safety Report 6806976-7 (Version None)
Quarter: 2010Q2

REPORT INFORMATION
  Report Type: 
  Country: None (occurrence: None)
  Receive Date: 20100629
  Receipt Date: 20080619
  Transmission Date: 20101027
  Serious: Yes (Other)
  Sender: FDA-Public Use
  Company Number: US-PFIZER INC-2008046824

PATIENT
  Sex: Female
  Weight: 54.4 kg

DRUGS (4)
  1. XANAX [Suspect]
     Indication: DYSPNOEA
     Dates: start: 20000201, end: 20080519
  2. LOTREL [Concomitant]
  3. CYMBALTA [Concomitant]
  4. ALL OTHER THERAPEUTIC PRODUCTS [Concomitant]

REACTIONS (12)
  - AGEUSIA [None]
  - DEPENDENCE [None]
  - DISTURBANCE IN ATTENTION [None]
  - DRUG INEFFECTIVE [None]
  - FEELING ABNORMAL [None]
  - FEELING JITTERY [None]
  - HEADACHE [None]
  - INSOMNIA [None]
  - MUSCLE TIGHTNESS [None]
  - NERVOUSNESS [None]
  - PALPITATIONS [None]
  - TINNITUS [None]
